FAERS Safety Report 6824285-7 (Version None)
Quarter: 2010Q3

REPORT INFORMATION
  Report Type: 
  Country: None (occurrence: None)
  Receive Date: 20100708
  Receipt Date: 20061016
  Transmission Date: 20110219
  Serious: No
  Sender: FDA-Public Use
  Company Number: US-PFIZER INC-2006127280

PATIENT
  Sex: Female

DRUGS (3)
  1. CHANTIX [Suspect]
  2. LISINOPRIL [Concomitant]
     Dosage: DAILY
  3. VITAMINS [Concomitant]

REACTIONS (2)
  - ABNORMAL DREAMS [None]
  - FATIGUE [None]
